FAERS Safety Report 14412136 (Version 3)
Quarter: 2021Q3

REPORT INFORMATION
  Report Type: Spontaneous
  Country: FR (occurrence: FR)
  Receive Date: 20180119
  Receipt Date: 20210719
  Transmission Date: 20211014
  Serious: Yes (Hospitalization, Other)
  Sender: FDA-Public Use
  Company Number: PHHY2017FR199128

PATIENT
  Sex: Female

DRUGS (10)
  1. METHOTREXATE. [Suspect]
     Active Substance: METHOTREXATE
     Dosage: 17.5 MG, QW (1X/WEEK)
     Route: 048
  2. VINCRISTINE [Suspect]
     Active Substance: VINCRISTINE
     Dosage: 1.1 MG, QD (1X/DAY D8, D29,D64))
     Route: 042
     Dates: start: 20170803
  3. PEGASPARGASE [Suspect]
     Active Substance: PEGASPARGASE
     Indication: ACUTE LYMPHOCYTIC LEUKAEMIA
     Dosage: 900 IU, QD (D8,D36, D64)
     Route: 042
     Dates: start: 20170803
  4. 6?MERCAPTOPURINE MONOHYDRATE [Suspect]
     Active Substance: MERCAPTOPURINE
     Dosage: 714 MG, QD (1X/DAY)
     Route: 048
     Dates: start: 20170824, end: 20170913
  5. DEXAMETHASONE. [Suspect]
     Active Substance: DEXAMETHASONE
     Dosage: 20 MG, QD (1X/DAY)
     Route: 065
     Dates: start: 20170824, end: 20170828
  6. DEXAMETHASONE. [Suspect]
     Active Substance: DEXAMETHASONE
     Indication: ACUTE LYMPHOCYTIC LEUKAEMIA
     Dosage: 22.5 MG, QD (1X/DAY)
     Route: 065
     Dates: start: 20170727, end: 20170926
  7. METHOTREXATE. [Suspect]
     Active Substance: METHOTREXATE
     Indication: ACUTE LYMPHOCYTIC LEUKAEMIA
     Dosage: 12 MG, QD (D2, D30, D58)
     Route: 037
     Dates: start: 20170728, end: 20170922
  8. DEXAMETHASONE. [Suspect]
     Active Substance: DEXAMETHASONE
     Dosage: 22.5 MG, QD (1X/DAY)
     Route: 048
     Dates: start: 20170921
  9. VINCRISTINE [Suspect]
     Active Substance: VINCRISTINE
     Indication: ACUTE LYMPHOCYTIC LEUKAEMIA
     Dosage: 1 MG, QD (1X/DAY (D1, D36,D57))
     Route: 042
     Dates: start: 20170727, end: 20170921
  10. 6?MERCAPTOPURINE MONOHYDRATE [Suspect]
     Active Substance: MERCAPTOPURINE
     Indication: ACUTE LYMPHOCYTIC LEUKAEMIA
     Dosage: 735 MG, QD (1X/DAY)
     Route: 048
     Dates: start: 20170727, end: 20170816

REACTIONS (2)
  - Febrile bone marrow aplasia [Recovered/Resolved]
  - Hyperbilirubinaemia [Recovered/Resolved]

NARRATIVE: CASE EVENT DATE: 20170921
